FAERS Safety Report 19452720 (Version 2)
Quarter: 2021Q3

REPORT INFORMATION
  Report Type: Spontaneous
  Country: US (occurrence: US)
  Receive Date: 20210623
  Receipt Date: 20210709
  Transmission Date: 20211014
  Serious: Yes (Hospitalization, Other)
  Sender: FDA-Public Use
  Company Number: US-AUROBINDO-AUR-APL-2021-024022

PATIENT
  Age: 51 Year
  Sex: Female

DRUGS (5)
  1. CEFTRIAXONE. [Suspect]
     Active Substance: CEFTRIAXONE
     Indication: KNEE ARTHROPLASTY
     Dosage: 2 GRAM, ONCE A DAY
     Route: 042
  2. CEFTRIAXONE. [Suspect]
     Active Substance: CEFTRIAXONE
     Indication: DEVICE RELATED INFECTION
  3. VANCOMYCIN [Suspect]
     Active Substance: VANCOMYCIN
     Indication: DEVICE RELATED INFECTION
     Dosage: 2 GRAM, TWO TIMES A DAY
     Route: 042
  4. VANCOMYCIN [Suspect]
     Active Substance: VANCOMYCIN
     Indication: KNEE ARTHROPLASTY
     Dosage: 2 GRAM ( VANCOMYCIN?IMPREGNATED ARTICULATING CEMENT SPACER)
     Route: 065
  5. TOBRAMYCIN. [Concomitant]
     Active Substance: TOBRAMYCIN
     Indication: DEVICE RELATED INFECTION
     Dosage: 1.2 GRAM (ARTICULATING SPACER COMPONENTS, 2 SEPARATE BAGS OF HIGH VISCOSITY BONE CEMENT )
     Route: 065

REACTIONS (8)
  - Drug reaction with eosinophilia and systemic symptoms [Recovered/Resolved]
  - Acute kidney injury [Recovered/Resolved]
  - Lymphadenopathy [Unknown]
  - Renal tubular necrosis [Recovered/Resolved]
  - Rash [Unknown]
  - Toxicity to various agents [Recovered/Resolved]
  - Transaminases increased [Recovered/Resolved]
  - Pyrexia [Recovered/Resolved]
